FAERS Safety Report 18193345 (Version 1)
Quarter: 2020Q3

REPORT INFORMATION
  Report Type: Spontaneous
  Country: US (occurrence: US)
  Receive Date: 20200825
  Receipt Date: 20200825
  Transmission Date: 20201103
  Serious: No
  Sender: FDA-Public Use
  Company Number: NVSC2020US234523

PATIENT
  Sex: Female

DRUGS (1)
  1. VOLTAREN [Suspect]
     Active Substance: DICLOFENAC SODIUM
     Indication: ARTHRITIS
     Dosage: UNK(2 WEEKS OF USE)
     Route: 065

REACTIONS (4)
  - Therapeutic response unexpected [Unknown]
  - Gait disturbance [Unknown]
  - Product administered at inappropriate site [Unknown]
  - Hypoaesthesia [Unknown]
